FAERS Safety Report 15230436 (Version 1)
Quarter: 2018Q3

REPORT INFORMATION
  Report Type: Spontaneous
  Country: US (occurrence: US)
  Receive Date: 20180802
  Receipt Date: 20180802
  Transmission Date: 20181010
  Serious: No
  Sender: FDA-Public Use
  Company Number: US-SHIRE-US201829769

PATIENT
  Age: 22 Year
  Sex: Male
  Weight: 31.75 kg

DRUGS (1)
  1. VYVANSE [Suspect]
     Active Substance: LISDEXAMFETAMINE DIMESYLATE
     Indication: ATTENTION DEFICIT/HYPERACTIVITY DISORDER
     Dosage: 70 MG, 1X/DAY:QD
     Route: 048
     Dates: start: 201611

REACTIONS (3)
  - Aggression [Recovered/Resolved]
  - Screaming [Recovered/Resolved]
  - Hostility [Recovered/Resolved]

NARRATIVE: CASE EVENT DATE: 20180725
